FAERS Safety Report 5332074-8 (Version None)
Quarter: 2007Q2

REPORT INFORMATION
  Report Type: 
  Country: None (occurrence: None)
  Receive Date: 20070523
  Receipt Date: 20070515
  Transmission Date: 20071010
  Serious: Yes (Other)
  Sender: FDA-Public Use
  Company Number: TR-AVENTIS-200714309GDDC

PATIENT
  Age: 49 Year
  Sex: Male

DRUGS (3)
  1. FLUOROURACIL [Suspect]
  2. CISPLATIN [Suspect]
  3. RADIOTHERAPY [Suspect]

REACTIONS (1)
  - INTRACARDIAC THROMBUS [None]
